FAERS Safety Report 7077567-0 (Version None)
Quarter: 2010Q4

REPORT INFORMATION
  Report Type: 
  Country: None (occurrence: None)
  Receive Date: 20101101
  Receipt Date: 20101020
  Transmission Date: 20110411
  Serious: Yes (Death, Other)
  Sender: FDA-Public Use
  Company Number: US-PFIZER INC-2010059791

PATIENT
  Sex: Male

DRUGS (1)
  1. XALATAN [Suspect]
     Indication: GLAUCOMA
     Dosage: UNK
     Route: 047

REACTIONS (2)
  - DEATH [None]
  - INTRAOCULAR PRESSURE INCREASED [None]
